FAERS Safety Report 4867864-9 (Version None)
Quarter: 2005Q4

REPORT INFORMATION
  Report Type: 
  Country: None (occurrence: None)
  Receive Date: 20051228
  Receipt Date: 20051219
  Transmission Date: 20060501
  Serious: Yes (Congenital Anomaly)
  Sender: FDA-Public Use
  Company Number: GB-ABBOTT-05P-167-0320241-00

PATIENT
  Sex: Male

DRUGS (2)
  1. VALPROATE SODIUM [Suspect]
     Indication: DRUG EXPOSURE DURING PREGNANCY
  2. CARBAMAZEPINE [Suspect]
     Indication: DRUG EXPOSURE DURING PREGNANCY

REACTIONS (17)
  - BRACHYCEPHALY [None]
  - COELIAC DISEASE [None]
  - CONGENITAL ANOMALY [None]
  - CONGENITAL ORAL MALFORMATION [None]
  - COW'S MILK INTOLERANCE [None]
  - CROUP INFECTIOUS [None]
  - CRYPTORCHISM [None]
  - DEVELOPMENTAL DELAY [None]
  - FACIAL DYSMORPHISM [None]
  - FEEDING DISORDER NEONATAL [None]
  - FEELING JITTERY [None]
  - FOETAL VALPROATE SYNDROME [None]
  - HYPOTONIA NEONATAL [None]
  - IRRITABILITY [None]
  - OTITIS MEDIA [None]
  - PLAGIOCEPHALY [None]
  - SLEEP DISORDER [None]
